FAERS Safety Report 7632315-8 (Version None)
Quarter: 2011Q3

REPORT INFORMATION
  Report Type: 
  Country: None (occurrence: None)
  Receive Date: 20110725
  Receipt Date: 20100827
  Transmission Date: 20111222
  Serious: No
  Sender: FDA-Public Use
  Company Number: US-BRISTOL-MYERS SQUIBB COMPANY-15213952

PATIENT
  Age: 38 Year
  Sex: Female

DRUGS (5)
  1. COUMADIN [Suspect]
     Dosage: TOOK BY MISTAKE EVENING 7.5MG COUMADIN DOSE IN THE MORNING
  2. INSULIN [Concomitant]
  3. LISINOPRIL [Concomitant]
  4. ATENOLOL [Concomitant]
  5. SIMVASTATIN [Concomitant]

REACTIONS (1)
  - DRUG ADMINISTRATION ERROR [None]
